FAERS Safety Report 8963141 (Version 3)
Quarter: 2013Q1

REPORT INFORMATION
  Report Type: Report from Study
  Country: US (occurrence: US)
  Receive Date: 20121214
  Receipt Date: 20130315
  Transmission Date: 20140127
  Serious: No
  Sender: FDA-Public Use
  Company Number: US-VERTEX PHARMACEUTICALS INC.-2012-025995

PATIENT
  Sex: Male
  Weight: 104 kg

DRUGS (4)
  1. VX-950 (TELAPREVIR) [Suspect]
     Indication: HEPATITIS C
     Dosage: 750 MG, TID
     Route: 048
     Dates: start: 20120919
  2. PEGASYS [Suspect]
     Indication: HEPATITIS C
     Dosage: 180 ?G,QW
     Route: 058
     Dates: start: 20120919
  3. RIBASPHERE [Suspect]
     Indication: HEPATITIS C
     Dosage: 400 MG, BID
     Route: 048
     Dates: start: 20120919
  4. PROCRIT [Concomitant]
     Indication: ANAEMIA
     Dosage: 40000 UT, QW
     Route: 058
     Dates: start: 201211

REACTIONS (8)
  - Emotional disorder [Unknown]
  - Crying [Unknown]
  - Dry mouth [Unknown]
  - Drug ineffective [Unknown]
  - Rash [Unknown]
  - Pruritus generalised [Unknown]
  - Anorectal discomfort [Unknown]
  - Dysgeusia [Unknown]
